FAERS Safety Report 5799820-0 (Version None)
Quarter: 2008Q3

REPORT INFORMATION
  Report Type: 
  Country: None (occurrence: None)
  Receive Date: 20080702
  Receipt Date: 20080702
  Transmission Date: 20090109
  Serious: Yes (Other)
  Sender: FDA-Public Use
  Company Number: None

PATIENT
  Sex: Male

DRUGS (1)
  1. DIGITEK 0.125MG MYLAN/BERTEK [Suspect]
     Indication: CARDIAC FAILURE
     Dosage: 1 TABLET ORALLY DAILY
     Route: 048
     Dates: start: 20060301

REACTIONS (3)
  - DIARRHOEA [None]
  - DIZZINESS [None]
  - HYPOTENSION [None]
